FAERS Safety Report 23546413 (Version 2)
Quarter: 2024Q1

REPORT INFORMATION
  Report Type: Report from Study
  Country: CH (occurrence: CH)
  Receive Date: 20240220
  Receipt Date: 20240227
  Transmission Date: 20240410
  Serious: Yes (Hospitalization, Other)
  Sender: FDA-Public Use
  Company Number: CH-ABBVIE-5643342

PATIENT
  Sex: Female

DRUGS (4)
  1. CARBIDOPA\LEVODOPA [Suspect]
     Active Substance: CARBIDOPA\LEVODOPA
     Indication: Parkinson^s disease
     Dosage: MD: 10ML, CRD: 4.9 ML/H, ED: 1.0 ML, CRN: 3.3 ML/H?FREQUENCY TEXT: 24H THERAPY
     Route: 050
     Dates: start: 20231015
  2. CARBIDOPA\LEVODOPA [Suspect]
     Active Substance: CARBIDOPA\LEVODOPA
     Dosage: LAST ADMIN DATE IN 2023?STOP DATE TEXT: STOPPED
     Route: 050
     Dates: start: 20230327
  3. CARBIDOPA\LEVODOPA [Suspect]
     Active Substance: CARBIDOPA\LEVODOPA
     Dosage: MD: 10ML, CRD: 4.9 ML/H, ED: 1.0 ML, CRN: 3.3 ML/H?FREQUENCY TEXT: 24H THERAPY
     Route: 050
     Dates: start: 20240222
  4. CARBIDOPA\LEVODOPA [Suspect]
     Active Substance: CARBIDOPA\LEVODOPA
     Dosage: MD: 10ML, CRD: 4.9 ML/H, ED: 1.0 ML, CRN: 3.3 ML/H
     Route: 050
     Dates: start: 2024, end: 20240222

REACTIONS (5)
  - Respiratory disorder [Not Recovered/Not Resolved]
  - Incorrect dose administered [Recovered/Resolved]
  - Incorrect dose administered [Recovered/Resolved]
  - Ileus [Unknown]
  - Device issue [Recovered/Resolved]

NARRATIVE: CASE EVENT DATE: 20240101
